FAERS Safety Report 17618707 (Version 2)
Quarter: 2020Q2

REPORT INFORMATION
  Report Type: Spontaneous
  Country: US (occurrence: US)
  Receive Date: 20200402
  Receipt Date: 20200426
  Transmission Date: 20200713
  Serious: No
  Sender: FDA-Public Use
  Company Number: US-AMGEN-USASP2020051673

PATIENT
  Age: 66 Year
  Sex: Female
  Weight: 97.96 kg

DRUGS (3)
  1. NEULASTA [Suspect]
     Active Substance: PEGFILGRASTIM
     Dosage: UNK
     Route: 065
  2. NEULASTA [Suspect]
     Active Substance: PEGFILGRASTIM
     Indication: NEUTROPENIA
     Dosage: UNK
     Route: 065
     Dates: start: 201912, end: 202003
  3. NEULASTA [Suspect]
     Active Substance: PEGFILGRASTIM
     Dosage: UNK
     Route: 065
     Dates: start: 20200323

REACTIONS (4)
  - Influenza like illness [Not Recovered/Not Resolved]
  - Device alarm issue [Unknown]
  - Application site pain [Unknown]
  - Application site discomfort [Unknown]

NARRATIVE: CASE EVENT DATE: 20200323
